FAERS Safety Report 21359457 (Version 2)
Quarter: 2022Q4

REPORT INFORMATION
  Report Type: Report from Study
  Country: US (occurrence: US)
  Receive Date: 20220921
  Receipt Date: 20221118
  Transmission Date: 20230113
  Serious: Yes (Hospitalization)
  Sender: FDA-Public Use
  Company Number: US-NOVARTISPH-NVSC2022US212697

PATIENT
  Sex: Female
  Weight: 77.098 kg

DRUGS (4)
  1. TREPROSTINIL [Suspect]
     Active Substance: TREPROSTINIL
     Indication: Pulmonary arterial hypertension
     Dosage: 53 NG/KG/MIN, CONT
     Route: 042
     Dates: start: 20220831
  2. TREPROSTINIL [Suspect]
     Active Substance: TREPROSTINIL
     Dosage: 53 NG/KG/MIN, CONT
     Route: 042
     Dates: start: 20221107
  3. SILDENAFIL CITRATE [Concomitant]
     Active Substance: SILDENAFIL CITRATE
     Indication: Product used for unknown indication
     Dosage: UNK
     Route: 065
  4. OPSUMIT [Concomitant]
     Active Substance: MACITENTAN
     Indication: Product used for unknown indication
     Dosage: UNK
     Route: 065

REACTIONS (1)
  - Enterobacter sepsis [Not Recovered/Not Resolved]
